FAERS Safety Report 10473352 (Version 5)
Quarter: 2018Q4

REPORT INFORMATION
  Report Type: Spontaneous
  Country: US (occurrence: US)
  Receive Date: 20140924
  Receipt Date: 20181025
  Transmission Date: 20190204
  Serious: No
  Sender: FDA-Public Use
  Company Number: US-PFIZER INC-2014263735

PATIENT
  Age: 59 Year
  Sex: Male

DRUGS (2)
  1. VIAGRA [Suspect]
     Active Substance: SILDENAFIL CITRATE
     Dosage: 50 MG, AS NEEDED
     Dates: start: 2012
  2. SKELAXIN [Suspect]
     Active Substance: METAXALONE
     Indication: JOINT INJURY
     Dosage: 800 MG, 1X/DAY
     Dates: start: 2009

REACTIONS (1)
  - Hypoacusis [Not Recovered/Not Resolved]
